FAERS Safety Report 7226803-6 (Version None)
Quarter: 2011Q1

REPORT INFORMATION
  Report Type: 
  Country: None (occurrence: None)
  Receive Date: 20110114
  Receipt Date: 20110105
  Transmission Date: 20110831
  Serious: No
  Sender: FDA-Public Use
  Company Number: US-RB-018293-11

PATIENT
  Age: 72 Year

DRUGS (6)
  1. MUCINEX DM [Suspect]
     Dosage: PATIENT HAS BEEN TAKING PRODUCT FOR A WEEK AS DIRECTED.
     Route: 048
  2. ASPIRIN [Concomitant]
  3. METFORMIN ANTIDEPRESSANTS [Concomitant]
  4. ZYPREXA [Concomitant]
  5. LEXAPRO [Concomitant]
  6. SPIRONOLOECTONE [Concomitant]

REACTIONS (1)
  - EPISTAXIS [None]
